FAERS Safety Report 18751595 (Version 3)
Quarter: 2021Q1

REPORT INFORMATION
  Report Type: Report from Study
  Country: MX (occurrence: MX)
  Receive Date: 20210118
  Receipt Date: 20210208
  Transmission Date: 20210419
  Serious: Yes (Other)
  Sender: FDA-Public Use
  Company Number: NVSC2021MX008286

PATIENT
  Age: 72 Year
  Sex: Female
  Weight: 64 kg

DRUGS (18)
  1. ZANIDIP [Concomitant]
     Active Substance: LERCANIDIPINE HYDROCHLORIDE
     Indication: CARDIAC DISORDER
  2. CONTUMAX [Concomitant]
     Indication: ABDOMINAL DISCOMFORT
     Dosage: 1 DF, QD (5 YEARS AGO)
     Route: 048
  3. LOBIVON [Concomitant]
     Active Substance: NEBIVOLOL HYDROCHLORIDE
     Indication: BLOOD PRESSURE ABNORMAL
     Dosage: 1 DF, QD (STARTED A YEAR AND A HALF)
     Route: 048
  4. ZANIDIP [Concomitant]
     Active Substance: LERCANIDIPINE HYDROCHLORIDE
     Indication: BLOOD PRESSURE ABNORMAL
     Dosage: 1 DF, QD (STARTED A YEAR AND A HALF)
     Route: 065
  5. MICTASOL [Concomitant]
     Indication: URINARY TRACT INFECTION
     Dosage: 1 DF, Q12H (LASTED 7 DAYS)
     Route: 048
     Dates: start: 202010
  6. CODIOVAN [Suspect]
     Active Substance: HYDROCHLOROTHIAZIDE\VALSARTAN
     Dosage: 1 DF (320/25 MG), QD
     Route: 048
     Dates: start: 202012
  7. EUTIROX [Concomitant]
     Active Substance: LEVOTHYROXINE SODIUM
     Indication: THYROID DISORDER
     Dosage: 1 DF (ON AN EMPY STOMACH)
     Route: 048
  8. PREGABALINE [Concomitant]
     Active Substance: PREGABALIN
     Indication: PRODUCT USED FOR UNKNOWN INDICATION
     Route: 065
  9. INHIBITRON [Concomitant]
     Indication: ABDOMINAL DISCOMFORT
     Dosage: 1 DF, QD (STARTED 5 YEARS AGO)
     Route: 048
  10. DIOVAN [Suspect]
     Active Substance: VALSARTAN
     Indication: BLOOD PRESSURE ABNORMAL
     Dosage: 1 DF (320 MG), QD
     Route: 048
     Dates: start: 202012
  11. FENOFIBRATE. [Concomitant]
     Active Substance: FENOFIBRATE
     Indication: DYSLIPIDAEMIA
     Dosage: 1 DF, QD (STARTED 5 YEARS AGO)
     Route: 048
     Dates: end: 202010
  12. ROSUVASTATIN. [Suspect]
     Active Substance: ROSUVASTATIN
     Indication: DYSLIPIDAEMIA
     Dosage: 1 DF (20 MG), QD
     Route: 048
     Dates: start: 202010
  13. DIAMICRON MR [Concomitant]
     Active Substance: GLICLAZIDE
     Indication: DIABETES MELLITUS
     Dosage: 1 DF, QD (STARTED 5 YEARS AGO)
     Route: 048
     Dates: end: 202010
  14. PREDIAL PLUS [Concomitant]
     Indication: DIABETES MELLITUS
     Dosage: 2 DF, QD (STARTED 5 YEARS AGO)
     Route: 048
     Dates: end: 202010
  15. TRAYENTA DUO [Concomitant]
     Active Substance: LINAGLIPTIN\METFORMIN HYDROCHLORIDE
     Indication: DIABETES MELLITUS
     Dosage: 1 DF, Q12H
     Route: 048
     Dates: start: 202010
  16. GAAP [Concomitant]
     Active Substance: LATANOPROST
     Indication: GLAUCOMA
     Dosage: 1 DF, QD (EACH EYE)
     Route: 047
  17. CODIOVAN [Suspect]
     Active Substance: HYDROCHLOROTHIAZIDE\VALSARTAN
     Indication: BLOOD PRESSURE ABNORMAL
     Dosage: 1 DF (320/25 MG), QD (STARTED 5 YEARS AGO)
     Route: 048
  18. ESPAVEN [Concomitant]
     Indication: PRODUCT USED FOR UNKNOWN INDICATION
     Route: 065

REACTIONS (3)
  - Blood pressure inadequately controlled [Recovered/Resolved]
  - Drug ineffective [Unknown]
  - Blood pressure increased [Recovered/Resolved]

NARRATIVE: CASE EVENT DATE: 202012
